FAERS Safety Report 6434697-1 (Version None)
Quarter: 2009Q4

REPORT INFORMATION
  Report Type: 
  Country: None (occurrence: None)
  Receive Date: 20091109
  Receipt Date: 20091109
  Transmission Date: 20100525
  Serious: Yes (Hospitalization)
  Sender: FDA-Public Use
  Company Number: None

PATIENT
  Age: 58 Year
  Sex: Male
  Weight: 100 kg

DRUGS (1)
  1. PROPOFOL [Suspect]
     Indication: ANAESTHESIA
     Dosage: IV
     Route: 042
     Dates: start: 20091105, end: 20091105

REACTIONS (8)
  - CARDIAC ARREST [None]
  - PROCEDURAL HYPOTENSION [None]
  - PRODUCT CONTAMINATION MICROBIAL [None]
  - PRODUCT QUALITY ISSUE [None]
  - RESPIRATORY ARREST [None]
  - SINUS BRADYCARDIA [None]
  - SINUS TACHYCARDIA [None]
  - VENTRICULAR ARRHYTHMIA [None]
